FAERS Safety Report 9645049 (Version 4)
Quarter: 2013Q4

REPORT INFORMATION
  Report Type: Spontaneous
  Country: DE (occurrence: DE)
  Receive Date: 20131025
  Receipt Date: 20131216
  Transmission Date: 20140711
  Serious: Yes (Death, Hospitalization, Other)
  Sender: FDA-Public Use
  Company Number: DE-AMGEN-DEUSP2013068991

PATIENT
  Age: 68 Year
  Sex: Male
  Weight: 90 kg

DRUGS (3)
  1. ENBREL [Suspect]
     Indication: PRODUCT USED FOR UNKNOWN INDICATION
     Dosage: 50 MG, WEEKLY
     Route: 058
     Dates: start: 20130808, end: 2013
  2. MTX                                /00113801/ [Concomitant]
     Dosage: 10 MG, WEEKLY
     Route: 058
     Dates: start: 20130917, end: 20130925
  3. PREDNISOLON                        /00016201/ [Concomitant]
     Dosage: 5 MG, UNK

REACTIONS (4)
  - Pneumothorax [Fatal]
  - Pneumonia [Fatal]
  - Renal failure acute [Fatal]
  - Dyspnoea [Fatal]
